FAERS Safety Report 7412204-4 (Version None)
Quarter: 2011Q2

REPORT INFORMATION
  Report Type: 
  Country: None (occurrence: None)
  Receive Date: 20110413
  Receipt Date: 20110331
  Transmission Date: 20111010
  Serious: Yes (Hospitalization)
  Sender: FDA-Public Use
  Company Number: DE-ELI_LILLY_AND_COMPANY-DE201104000043

PATIENT
  Age: 70 Year
  Sex: Female

DRUGS (3)
  1. ZYPADHERA [Suspect]
     Dosage: 300 MG, EVERY 2 WEEKS
     Route: 030
     Dates: start: 20101001, end: 20101202
  2. BISOPROLOL [Concomitant]
     Dosage: UNK, QD
     Route: 065
     Dates: start: 20000101
  3. ABILIFY [Concomitant]
     Dosage: UNK, QD
     Route: 065
     Dates: start: 20101001

REACTIONS (2)
  - HEART RATE INCREASED [None]
  - BLOOD PRESSURE INCREASED [None]
